FAERS Safety Report 5401097-2 (Version None)
Quarter: 2007Q3

REPORT INFORMATION
  Report Type: 
  Country: None (occurrence: None)
  Receive Date: 20070726
  Receipt Date: 20070719
  Transmission Date: 20080115
  Serious: Yes (Hospitalization)
  Sender: FDA-Public Use
  Company Number: 2007-03422

PATIENT
  Age: 54 Year
  Sex: Female

DRUGS (2)
  1. METHYLPREDNISOLONE ACETATE [Suspect]
     Indication: PRIMARY PROGRESSIVE MULTIPLE SCLEROSIS
     Dosage: 1000 MG, DAILY X 3DAY, BI-MONTH, INTRAVENOUS
     Route: 042
     Dates: start: 20070101
  2. LEVOTHYROXINE SODIUM [Concomitant]

REACTIONS (1)
  - HEPATIC NECROSIS [None]
